FAERS Safety Report 6899228-0 (Version None)
Quarter: 2010Q3

REPORT INFORMATION
  Report Type: 
  Country: None (occurrence: None)
  Receive Date: 20100802
  Receipt Date: 20080216
  Transmission Date: 20110219
  Serious: No
  Sender: FDA-Public Use
  Company Number: US-PFIZER INC-2008003962

PATIENT
  Age: 45 Year
  Sex: Female
  Weight: 176 kg

DRUGS (6)
  1. LYRICA [Suspect]
     Indication: FIBROMYALGIA
     Dates: start: 20070807, end: 20070807
  2. LYRICA [Suspect]
     Indication: MIGRAINE
  3. LASIX [Concomitant]
  4. KLOR-CON [Concomitant]
  5. DURAGESIC-100 [Concomitant]
  6. PROMETHAZINE [Concomitant]

REACTIONS (3)
  - ABDOMINAL PAIN [None]
  - DIARRHOEA [None]
  - SOMNOLENCE [None]
